FAERS Safety Report 9015529 (Version 1)
Quarter: 2013Q1

REPORT INFORMATION
  Report Type: Spontaneous
  Country: US (occurrence: None)
  Receive Date: 20130110
  Receipt Date: 20130110
  Transmission Date: 20140127
  Serious: Yes (Other)
  Sender: FDA-Public Use
  Company Number: None

PATIENT
  Age: 40 Year
  Sex: 0
  Weight: 90.72 kg

DRUGS (1)
  1. GAMMAGUARD SD LOW IGA 10% BAXTER [Suspect]
     Dosage: 40 GRAMS EVERY 4 WEEKS IV DRIP
     Route: 041
     Dates: start: 20121219, end: 20121219

REACTIONS (3)
  - Urticaria [None]
  - Infusion related reaction [None]
  - Pruritus [None]
